FAERS Safety Report 25193275 (Version 1)
Quarter: 2025Q2

REPORT INFORMATION
  Report Type: Spontaneous
  Country: PL (occurrence: PL)
  Receive Date: 20250414
  Receipt Date: 20250414
  Transmission Date: 20250717
  Serious: Yes (Other)
  Sender: ELI LILLY AND CO
  Company Number: PL-Merck Healthcare KGaA-2025016832

PATIENT
  Age: 55 Year
  Sex: Male

DRUGS (4)
  1. ERBITUX [Suspect]
     Active Substance: CETUXIMAB
     Indication: Tongue cancer metastatic
     Dosage: 400 MG/M2, WEEKLY (1/W)
     Route: 042
     Dates: start: 202309
  2. ERBITUX [Suspect]
     Active Substance: CETUXIMAB
     Dosage: 250 MG/M2, UNK
     Route: 042
     Dates: start: 202309
  3. DOCETAXEL [Suspect]
     Active Substance: DOCETAXEL
     Indication: Tongue cancer metastatic
     Route: 065
     Dates: start: 202309, end: 202310
  4. CISPLATIN [Suspect]
     Active Substance: CISPLATIN
     Indication: Tongue cancer metastatic
     Route: 065
     Dates: start: 202309, end: 202310

REACTIONS (6)
  - Haematotoxicity [Unknown]
  - Arrhythmia [Unknown]
  - Malignant neoplasm progression [Unknown]
  - Spinal pain [Unknown]
  - Skin lesion [Unknown]
  - Hypomagnesaemia [Unknown]

NARRATIVE: CASE EVENT DATE: 20241201
